FAERS Safety Report 17269613 (Version 1)
Quarter: 2020Q1

REPORT INFORMATION
  Report Type: Spontaneous
  Country: CA (occurrence: CA)
  Receive Date: 20200114
  Receipt Date: 20200114
  Transmission Date: 20200409
  Serious: Yes (Other)
  Sender: FDA-Public Use
  Company Number: CA-SA-2020SA006930

PATIENT
  Age: 53 Year
  Sex: Female

DRUGS (9)
  1. SULFASALAZINE. [Suspect]
     Active Substance: SULFASALAZINE
     Indication: PRODUCT USED FOR UNKNOWN INDICATION
     Dosage: UNK UNK, UNK
     Route: 065
  2. PLAQUENIL [Concomitant]
     Active Substance: HYDROXYCHLOROQUINE SULFATE
     Dosage: UNK UNK, UNK
     Route: 065
  3. ORENCIA [Concomitant]
     Active Substance: ABATACEPT
     Dosage: UNK UNK, UNK
  4. METHOTREXATE. [Suspect]
     Active Substance: METHOTREXATE
     Indication: PRODUCT USED FOR UNKNOWN INDICATION
     Dosage: UNK UNK, UNK
     Route: 065
  5. ENBREL [Suspect]
     Active Substance: ETANERCEPT
     Indication: PRODUCT USED FOR UNKNOWN INDICATION
     Dosage: UNK UNK, UNK
     Route: 065
  6. PREDNISONE. [Concomitant]
     Active Substance: PREDNISONE
     Dosage: 20 MG, QD
  7. ARAVA [Suspect]
     Active Substance: LEFLUNOMIDE
     Indication: PRODUCT USED FOR UNKNOWN INDICATION
     Dosage: UNK UNK, UNK
     Route: 065
  8. HUMIRA [Concomitant]
     Active Substance: ADALIMUMAB
     Dosage: UNK UNK, UNK
  9. METHOTREXATE. [Suspect]
     Active Substance: METHOTREXATE
     Dosage: UNK UNK, UNK
     Route: 065

REACTIONS (7)
  - Fungal infection [Not Recovered/Not Resolved]
  - Hospitalisation [Unknown]
  - Abdominal discomfort [Not Recovered/Not Resolved]
  - Arthralgia [Not Recovered/Not Resolved]
  - Oral herpes [Not Recovered/Not Resolved]
  - Drug ineffective [Unknown]
  - Pain in extremity [Not Recovered/Not Resolved]
